FAERS Safety Report 10274733 (Version 1)
Quarter: 2014Q3

REPORT INFORMATION
  Report Type: Spontaneous
  Country: IT (occurrence: IT)
  Receive Date: 20140702
  Receipt Date: 20140702
  Transmission Date: 20150326
  Serious: Yes (Life-Threatening)
  Sender: FDA-Public Use
  Company Number: IT-PFIZER INC-2014182165

PATIENT
  Age: 49 Year
  Sex: Female

DRUGS (3)
  1. PALEXIA [Suspect]
     Active Substance: TAPENTADOL HYDROCHLORIDE
     Indication: DEPRESSION
     Dosage: 250 MG, TOTAL DOSAGE
     Route: 048
     Dates: start: 20140530, end: 20140530
  2. KESTINE [Suspect]
     Active Substance: EBASTINE
     Indication: RHINITIS ALLERGIC
     Dosage: 80 MG, TOTAL DOSAGE
     Route: 048
     Dates: start: 20140530, end: 20140530
  3. XANAX [Suspect]
     Active Substance: ALPRAZOLAM
     Indication: ANXIETY
     Dosage: 40 GTT, TOTAL DOSAGE
     Route: 048
     Dates: start: 20140530, end: 20140530

REACTIONS (3)
  - Drug abuse [Recovering/Resolving]
  - Confusional state [Recovering/Resolving]
  - Sopor [Recovering/Resolving]

NARRATIVE: CASE EVENT DATE: 20140530
